FAERS Safety Report 14768230 (Version 1)
Quarter: 2018Q2

REPORT INFORMATION
  Report Type: Spontaneous
  Country: US (occurrence: US)
  Receive Date: 20180410
  Receipt Date: 20180410
  Transmission Date: 20180711
  Serious: Yes (Hospitalization)
  Sender: FDA-Public Use
  Company Number: None

PATIENT
  Age: 56 Year
  Sex: Female
  Weight: 68.6 kg

DRUGS (1)
  1. PACLITAXEL 6 MG/ML 50 ML VIAL HOSPIRA [Suspect]
     Active Substance: PACLITAXEL
     Route: 042
     Dates: start: 20180302, end: 20180406

REACTIONS (4)
  - Hypersensitivity [None]
  - Chest pain [None]
  - Throat irritation [None]
  - Cough [None]

NARRATIVE: CASE EVENT DATE: 20180406
